FAERS Safety Report 4865911-1 (Version None)
Quarter: 2005Q4

REPORT INFORMATION
  Report Type: 
  Country: None (occurrence: None)
  Receive Date: 20051226
  Receipt Date: 20050425
  Transmission Date: 20060501
  Serious: Yes (Hospitalization, Other)
  Sender: FDA-Public Use
  Company Number: US-SP-2005-00792

PATIENT
  Age: 42 Year
  Sex: Female

DRUGS (7)
  1. TUBERSOL [Suspect]
     Indication: TUBERCULIN TEST
     Route: 023
     Dates: start: 20050419
  2. TUBERSOL [Suspect]
     Route: 023
     Dates: start: 20050419
  3. TUBERSOL [Suspect]
     Route: 023
     Dates: start: 20050419
  4. CRESTOR [Concomitant]
  5. NEXIUM [Concomitant]
  6. CLONAZEPAM [Concomitant]
  7. ADVAIR DISKUS 250/50 [Concomitant]

REACTIONS (12)
  - ARTHRALGIA [None]
  - CHEST PAIN [None]
  - HYPERSENSITIVITY [None]
  - INJECTION SITE PRURITUS [None]
  - INJECTION SITE RASH [None]
  - INJECTION SITE REACTION [None]
  - JOINT STIFFNESS [None]
  - PHARYNGEAL OEDEMA [None]
  - PRURITUS [None]
  - SWELLING FACE [None]
  - URTICARIA [None]
  - URTICARIA GENERALISED [None]
